FAERS Safety Report 6204068-1 (Version None)
Quarter: 2009Q2

REPORT INFORMATION
  Report Type: 
  Country: None (occurrence: None)
  Receive Date: 20090526
  Receipt Date: 20090526
  Transmission Date: 20091009
  Serious: Yes (Other)
  Sender: FDA-Public Use
  Company Number: None

PATIENT
  Age: 49 Year
  Sex: Female
  Weight: 74 kg

DRUGS (3)
  1. ZYVOX [Suspect]
     Indication: BACTERAEMIA
     Dosage: PO
     Route: 048
     Dates: start: 20090523, end: 20090523
  2. ZYVOX [Suspect]
     Indication: ENDOCARDITIS
     Dosage: PO
     Route: 048
     Dates: start: 20090523, end: 20090523
  3. ZYVOX [Suspect]
     Indication: STAPHYLOCOCCAL INFECTION
     Dosage: PO
     Route: 048
     Dates: start: 20090523, end: 20090523

REACTIONS (1)
  - STEVENS-JOHNSON SYNDROME [None]
